FAERS Safety Report 5017513-4 (Version None)
Quarter: 2006Q2

REPORT INFORMATION
  Report Type: 
  Country: None (occurrence: None)
  Receive Date: 20060601
  Receipt Date: 20060601
  Transmission Date: 20061013
  Serious: Yes (Other)
  Sender: FDA-Public Use
  Company Number: None

PATIENT
  Age: 82 Year
  Sex: Male
  Weight: 108.8633 kg

DRUGS (5)
  1. LEVAQUIN [Suspect]
     Indication: RESPIRATORY TRACT INFECTION BACTERIAL
     Dosage: 500MG   DAILY   ORALLY
     Route: 048
     Dates: start: 20060528, end: 20060530
  2. LIPITOR [Concomitant]
  3. ASPIRIN [Concomitant]
  4. PROCARDIA [Concomitant]
  5. COZAAR [Concomitant]

REACTIONS (1)
  - DYSPNOEA [None]
